FAERS Safety Report 23092226 (Version 2)
Quarter: 2023Q4

REPORT INFORMATION
  Report Type: Spontaneous
  Country: US (occurrence: US)
  Receive Date: 20231021
  Receipt Date: 20231029
  Transmission Date: 20240110
  Serious: No
  Sender: FDA-Public Use
  Company Number: US-TEVA-2023-US-2936446

PATIENT

DRUGS (2)
  1. AIRDUO RESPICLICK [Suspect]
     Active Substance: FLUTICASONE PROPIONATE\SALMETEROL XINAFOATE
     Indication: Asthma
     Dosage: FOR ALMOST A YEAR NOW
     Route: 065
  2. AIRDUO RESPICLICK [Suspect]
     Active Substance: FLUTICASONE PROPIONATE\SALMETEROL XINAFOATE
     Dosage: STRENGTH IS 55MSG/14MCG
     Route: 065

REACTIONS (5)
  - Cough [Unknown]
  - Malaise [Unknown]
  - Drug effect less than expected [Unknown]
  - Product physical issue [Unknown]
  - Drug delivery system issue [Unknown]
